FAERS Safety Report 18923991 (Version 1)
Quarter: 2021Q1

REPORT INFORMATION
  Report Type: Spontaneous
  Country: CA (occurrence: CA)
  Receive Date: 20210222
  Receipt Date: 20210222
  Transmission Date: 20210420
  Serious: Yes (Other)
  Sender: FDA-Public Use
  Company Number: NVSC2021CA037078

PATIENT
  Age: 77 Year
  Sex: Female

DRUGS (11)
  1. ACETAMINOPHEN. [Concomitant]
     Active Substance: ACETAMINOPHEN
     Indication: PRODUCT USED FOR UNKNOWN INDICATION
     Dosage: UNK
     Route: 065
  2. COSENTYX [Suspect]
     Active Substance: SECUKINUMAB
     Indication: ANKYLOSING SPONDYLITIS
     Dosage: 150 MG, QMO
     Route: 058
  3. COSENTYX [Suspect]
     Active Substance: SECUKINUMAB
     Dosage: 300 MG
     Route: 058
  4. DILTIAZEM. [Suspect]
     Active Substance: DILTIAZEM
     Indication: PRODUCT USED FOR UNKNOWN INDICATION
     Dosage: UNK
     Route: 065
  5. HUMIRA [Concomitant]
     Active Substance: ADALIMUMAB
     Indication: PRODUCT USED FOR UNKNOWN INDICATION
     Dosage: SOLUTION
     Route: 058
  6. COSENTYX [Suspect]
     Active Substance: SECUKINUMAB
     Dosage: 300 MG
     Route: 058
  7. METHOTREXATE. [Concomitant]
     Active Substance: METHOTREXATE
     Indication: PRODUCT USED FOR UNKNOWN INDICATION
     Dosage: UNK
     Route: 065
  8. CYMBALTA [Suspect]
     Active Substance: DULOXETINE HYDROCHLORIDE
     Indication: PAIN
     Dosage: 60 MG, BID
     Route: 065
  9. XARELTO [Concomitant]
     Active Substance: RIVAROXABAN
     Indication: PRODUCT USED FOR UNKNOWN INDICATION
     Dosage: UNK
     Route: 065
  10. DESOXIMETASONE. [Concomitant]
     Active Substance: DESOXIMETASONE
     Indication: PRODUCT USED FOR UNKNOWN INDICATION
     Dosage: UNK
     Route: 065
  11. NAPROXEN. [Concomitant]
     Active Substance: NAPROXEN
     Indication: PRODUCT USED FOR UNKNOWN INDICATION
     Dosage: UNK
     Route: 065

REACTIONS (43)
  - Abdominal distension [Unknown]
  - Aortic arteriosclerosis [Unknown]
  - Arthritis [Unknown]
  - Dyspnoea exertional [Unknown]
  - Osteoarthritis [Unknown]
  - Seizure [Unknown]
  - Tendon pain [Unknown]
  - Spondyloarthropathy [Unknown]
  - Tendonitis [Unknown]
  - Musculoskeletal stiffness [Unknown]
  - Fatigue [Unknown]
  - Burning sensation [Unknown]
  - Peripheral swelling [Unknown]
  - Drug ineffective [Unknown]
  - Arthropathy [Unknown]
  - Chest pain [Unknown]
  - Dizziness [Unknown]
  - Intervertebral disc degeneration [Unknown]
  - Osteoporosis [Unknown]
  - Pain [Unknown]
  - Dysuria [Unknown]
  - Eye pain [Unknown]
  - Fibromyalgia [Unknown]
  - Hyperhidrosis [Unknown]
  - Intervertebral disc space narrowing [Unknown]
  - Rib fracture [Unknown]
  - Trigger finger [Unknown]
  - Vitamin D decreased [Unknown]
  - Pain in extremity [Unknown]
  - Cyst [Unknown]
  - Hepatomegaly [Unknown]
  - Orthopnoea [Unknown]
  - Tremor [Unknown]
  - Vision blurred [Unknown]
  - Back pain [Unknown]
  - Dry skin [Unknown]
  - Chondrocalcinosis [Unknown]
  - Cystitis [Unknown]
  - Faeces discoloured [Unknown]
  - Fall [Unknown]
  - Gait inability [Unknown]
  - Insomnia [Unknown]
  - Restlessness [Unknown]
